FAERS Safety Report 18451553 (Version 2)
Quarter: 2020Q4

REPORT INFORMATION
  Report Type: Spontaneous
  Country: JP (occurrence: JP)
  Receive Date: 20201102
  Receipt Date: 20201127
  Transmission Date: 20210114
  Serious: Yes (Other)
  Sender: FDA-Public Use
  Company Number: NVSJ2020JP011209

PATIENT
  Sex: Female

DRUGS (7)
  1. ZONISAMIDE. [Suspect]
     Active Substance: ZONISAMIDE
     Indication: EPILEPTIC ENCEPHALOPATHY
     Dosage: UNK
     Route: 065
  2. VALPROATE SODIUM. [Suspect]
     Active Substance: VALPROATE SODIUM
     Indication: EPILEPTIC ENCEPHALOPATHY
     Dosage: UNK
     Route: 065
  3. TEGRETOL [Suspect]
     Active Substance: CARBAMAZEPINE
     Indication: EPILEPTIC ENCEPHALOPATHY
     Dosage: UNK
     Route: 065
  4. CLOBAZAM. [Suspect]
     Active Substance: CLOBAZAM
     Indication: EPILEPTIC ENCEPHALOPATHY
     Dosage: UNK
     Route: 065
  5. TOPIRAMATE. [Suspect]
     Active Substance: TOPIRAMATE
     Indication: EPILEPTIC ENCEPHALOPATHY
     Dosage: UNK MG
     Route: 065
  6. LEVETIRACETAM. [Suspect]
     Active Substance: LEVETIRACETAM
     Indication: EPILEPTIC ENCEPHALOPATHY
     Dosage: UNK
     Route: 065
  7. LAMOTRIGINE. [Suspect]
     Active Substance: LAMOTRIGINE
     Indication: EPILEPTIC ENCEPHALOPATHY
     Dosage: UNK
     Route: 065

REACTIONS (2)
  - Therapeutic product effect incomplete [Unknown]
  - Cognitive disorder [Unknown]
